FAERS Safety Report 4453895-X (Version None)
Quarter: 2004Q3

REPORT INFORMATION
  Report Type: 
  Country: None (occurrence: None)
  Receive Date: 20040920
  Receipt Date: 20040227
  Transmission Date: 20050211
  Serious: Yes (Hospitalization)
  Sender: FDA-Public Use
  Company Number: US-MERCK-0403USA00007

PATIENT
  Age: 71 Year
  Sex: Female
  Weight: 84 kg

DRUGS (12)
  1. TYLENOL [Concomitant]
     Route: 065
  2. DARVOCET-N 100 [Concomitant]
     Route: 065
  3. XANAX [Concomitant]
     Route: 065
     Dates: start: 19890101
  4. XANAX [Concomitant]
     Route: 065
     Dates: start: 19890101
  5. ALPHAGAN [Concomitant]
     Route: 047
  6. XALATAN [Concomitant]
     Route: 047
  7. SYNTHROID [Concomitant]
     Route: 065
  8. VIOXX [Suspect]
     Indication: ARTHRALGIA
     Route: 048
     Dates: start: 20020212, end: 20020501
  9. VIOXX [Suspect]
     Indication: OSTEOARTHRITIS
     Route: 048
     Dates: start: 20020212, end: 20020501
  10. ZOLOFT [Concomitant]
     Route: 065
     Dates: start: 20020401, end: 20020401
  11. ZOLOFT [Concomitant]
     Route: 065
     Dates: start: 20000228, end: 20020401
  12. ZOLOFT [Concomitant]
     Route: 065
     Dates: start: 20020401

REACTIONS (16)
  - AORTIC ANEURYSM [None]
  - BACK PAIN [None]
  - BRONCHITIS [None]
  - CELLULITIS [None]
  - CHRONIC OBSTRUCTIVE AIRWAYS DISEASE [None]
  - CONGENITAL ATRIAL SEPTAL DEFECT [None]
  - CORONARY ARTERY DISEASE [None]
  - DEPRESSION [None]
  - DRUG HYPERSENSITIVITY [None]
  - DRUG INEFFECTIVE [None]
  - FEAR [None]
  - HYPERCHOLESTEROLAEMIA [None]
  - ISCHAEMIC STROKE [None]
  - OEDEMA PERIPHERAL [None]
  - PANIC DISORDER WITH AGORAPHOBIA [None]
  - SPONDYLOLISTHESIS ACQUIRED [None]
